FAERS Safety Report 5063996-3 (Version None)
Quarter: 2006Q3

REPORT INFORMATION
  Report Type: 
  Country: None (occurrence: None)
  Receive Date: 20060703
  Receipt Date: 20060518
  Transmission Date: 20061208
  Serious: Yes (Other)
  Sender: FDA-Public Use
  Company Number: 145972USA

PATIENT
  Age: 66 Year
  Sex: Female

DRUGS (14)
  1. LEFLUNOMIDE [Suspect]
     Indication: RHEUMATOID ARTHRITIS
     Dates: start: 20060101
  2. ARAVA [Suspect]
     Indication: RHEUMATOID ARTHRITIS
     Dosage: 10 MILLIGRAM QD
     Dates: start: 19960101
  3. ASPIRIN [Concomitant]
  4. PREDNISONE [Concomitant]
  5. HYZAAR [Concomitant]
  6. TOPROL-XL [Concomitant]
  7. AMBIEN [Concomitant]
  8. LASIX [Concomitant]
  9. ESOMEPRAZOLE MAGNESIUM [Concomitant]
  10. METHOTREXATE [Concomitant]
  11. ATORVASTATIN CALCIUM [Concomitant]
  12. XANAX [Concomitant]
  13. VICODIN [Concomitant]
  14. BENADRYL [Concomitant]

REACTIONS (27)
  - ALOPECIA [None]
  - ANXIETY [None]
  - BLOOD GLUCOSE INCREASED [None]
  - BLOOD PRESSURE INCREASED [None]
  - CHEST PAIN [None]
  - CONSTIPATION [None]
  - CORONARY ARTERY DISEASE [None]
  - DIARRHOEA [None]
  - DIZZINESS [None]
  - FATIGUE [None]
  - FIBROMYALGIA [None]
  - HIATUS HERNIA [None]
  - HYPOAESTHESIA [None]
  - MENTAL DISORDER [None]
  - MUSCLE SPASMS [None]
  - OSTEOARTHRITIS [None]
  - PAIN [None]
  - PARAESTHESIA [None]
  - PRURITUS [None]
  - RASH [None]
  - SCAB [None]
  - SKIN DISCOLOURATION [None]
  - SKIN EXFOLIATION [None]
  - SWELLING [None]
  - THYROID CYST [None]
  - URINE ANALYSIS ABNORMAL [None]
  - WEIGHT INCREASED [None]
